FAERS Safety Report 12190124 (Version 1)
Quarter: 2016Q1

REPORT INFORMATION
  Report Type: Spontaneous
  Country: US (occurrence: None)
  Receive Date: 20160317
  Receipt Date: 20160317
  Transmission Date: 20160526
  Serious: Yes (Disabling)
  Sender: FDA-Public Use
  Company Number: None

PATIENT
  Age: 38 Year
  Sex: Female
  Weight: 76.2 kg

DRUGS (1)
  1. LAMICTAL [Suspect]
     Active Substance: LAMOTRIGINE
     Indication: BIPOLAR DISORDER
     Dosage: 100 MG/1 PILL ONCE DAILY TAKEN BY MOUTH
     Route: 048
     Dates: start: 20150713, end: 20160212

REACTIONS (6)
  - Clumsiness [None]
  - Vision blurred [None]
  - Memory impairment [None]
  - Confusional state [None]
  - Diplopia [None]
  - Coordination abnormal [None]

NARRATIVE: CASE EVENT DATE: 20160212
